FAERS Safety Report 15707943 (Version 14)
Quarter: 2019Q3

REPORT INFORMATION
  Report Type: Spontaneous
  Country: CA (occurrence: CA)
  Receive Date: 20181211
  Receipt Date: 20190930
  Transmission Date: 20191004
  Serious: Yes (Life-Threatening, Other)
  Sender: FDA-Public Use
  Company Number: CA-CELLTRION INC.-2018CA024585

PATIENT

DRUGS (166)
  1. ENBREL [Suspect]
     Active Substance: ETANERCEPT
     Dosage: 50 MILLIGRAM, QWK
     Route: 058
  2. ENBREL [Suspect]
     Active Substance: ETANERCEPT
     Dosage: 50 MILLIGRAM, UNK
     Route: 065
  3. ENBREL [Suspect]
     Active Substance: ETANERCEPT
     Dosage: 25 MILLIGRAM, QWK
     Route: 065
  4. ENBREL [Suspect]
     Active Substance: ETANERCEPT
     Dosage: 25 MILLIGRAM, QD
     Route: 065
  5. RAPAMUNE [Suspect]
     Active Substance: SIROLIMUS
     Dosage: 1000 MILLIGRAM, BID
     Route: 065
  6. DACLIZUMAB [Suspect]
     Active Substance: DACLIZUMAB
     Indication: TRANSPLANT
     Dosage: 5 MILLIGRAM, UNK
     Route: 042
  7. MYCOPHENOLATE MOFETIL. [Suspect]
     Active Substance: MYCOPHENOLATE MOFETIL
     Dosage: 2000 MILLIGRAM, QD
     Route: 048
  8. NEORAL [Suspect]
     Active Substance: CYCLOSPORINE
     Dosage: UNK
     Route: 065
  9. PROGRAF [Suspect]
     Active Substance: TACROLIMUS\TACROLIMUS ANHYDROUS
     Dosage: 1000 MILLIGRAM, 2 EVERY 1 HOUR
     Route: 048
  10. PROGRAF [Suspect]
     Active Substance: TACROLIMUS\TACROLIMUS ANHYDROUS
     Dosage: 2.5 MILLIGRAM, BID
     Route: 048
  11. PROGRAF [Suspect]
     Active Substance: TACROLIMUS\TACROLIMUS ANHYDROUS
     Dosage: UNK
     Route: 048
  12. PROGRAF [Suspect]
     Active Substance: TACROLIMUS\TACROLIMUS ANHYDROUS
     Dosage: 4 MILLIGRAM, QD
     Route: 048
  13. PROGRAF [Suspect]
     Active Substance: TACROLIMUS\TACROLIMUS ANHYDROUS
     Dosage: 5 MILLIGRAM, QD
     Route: 048
  14. PROGRAF [Suspect]
     Active Substance: TACROLIMUS\TACROLIMUS ANHYDROUS
     Dosage: 3 MILLIGRAM, QD
     Route: 048
  15. PROGRAF [Suspect]
     Active Substance: TACROLIMUS\TACROLIMUS ANHYDROUS
     Dosage: 2 MILLIGRAM, QD
     Route: 048
  16. PROGRAF [Suspect]
     Active Substance: TACROLIMUS\TACROLIMUS ANHYDROUS
     Dosage: 3 MILLIGRAM, UNK
     Route: 048
  17. PROGRAF [Suspect]
     Active Substance: TACROLIMUS\TACROLIMUS ANHYDROUS
     Dosage: 2000 MILLIGRAM, QD
     Route: 048
  18. TACROLIMUS. [Suspect]
     Active Substance: TACROLIMUS
     Dosage: 2.5 MILLIGRAM, BID
     Route: 048
  19. TACROLIMUS. [Suspect]
     Active Substance: TACROLIMUS
     Dosage: 5 MILLIGRAM, QD
     Route: 048
  20. TACROLIMUS. [Suspect]
     Active Substance: TACROLIMUS
     Dosage: 11.1 GRAM
     Route: 048
  21. ZENAPAX [Suspect]
     Active Substance: DACLIZUMAB
     Dosage: UNK
     Route: 042
  22. ZENAPAX [Suspect]
     Active Substance: DACLIZUMAB
     Dosage: UNK
     Route: 042
  23. CELLCEPT [Suspect]
     Active Substance: MYCOPHENOLATE MOFETIL\MYCOPHENOLATE MOFETIL HYDROCHLORIDE
     Dosage: 1000 MG, UNK
     Route: 048
  24. CELLCEPT [Suspect]
     Active Substance: MYCOPHENOLATE MOFETIL\MYCOPHENOLATE MOFETIL HYDROCHLORIDE
     Dosage: 1000 MG, BID
     Route: 048
  25. ANTITHYMOCYTE IMMUNOGLOBULIN (HORSE) [Suspect]
     Active Substance: EQUINE THYMOCYTE IMMUNE GLOBULIN
     Indication: TRANSPLANT
     Dosage: UNK (6 MG/KG)
     Route: 065
  26. GLICLAZIDE [Suspect]
     Active Substance: GLICLAZIDE
     Dosage: UNK
     Route: 042
  27. ENBREL [Suspect]
     Active Substance: ETANERCEPT
     Dosage: 25 MILLIGRAM, QWK
     Route: 058
  28. ANTITHYMOCYTE IMMUNOGLOBULIN [Suspect]
     Active Substance: THYMOCYTE IMMUNE GLOBULIN NOS
     Dosage: 50 MILLIGRAM, UNK
     Route: 065
  29. DACLIZUMAB [Suspect]
     Active Substance: DACLIZUMAB
     Dosage: UNK
     Route: 042
  30. DACLIZUMAB [Suspect]
     Active Substance: DACLIZUMAB
     Dosage: UNK
     Route: 065
  31. MYCOPHENOLATE MOFETIL. [Suspect]
     Active Substance: MYCOPHENOLATE MOFETIL
     Dosage: 100 MILLIGRAM, BID
     Route: 048
  32. MYCOPHENOLATE MOFETIL. [Suspect]
     Active Substance: MYCOPHENOLATE MOFETIL
     Dosage: 1000 MILLIGRAM, UNK
     Route: 048
  33. MYCOPHENOLATE MOFETIL. [Suspect]
     Active Substance: MYCOPHENOLATE MOFETIL
     Dosage: 100 MILLIGRAM, BID
     Route: 048
  34. PROGRAF [Suspect]
     Active Substance: TACROLIMUS\TACROLIMUS ANHYDROUS
     Dosage: 6 MILLIGRAM, QD
     Route: 048
  35. PROGRAF [Suspect]
     Active Substance: TACROLIMUS\TACROLIMUS ANHYDROUS
     Dosage: UNK
     Route: 048
  36. PROGRAF [Suspect]
     Active Substance: TACROLIMUS\TACROLIMUS ANHYDROUS
     Dosage: 2 MILLIGRAM, UNK
     Route: 048
  37. PROGRAF [Suspect]
     Active Substance: TACROLIMUS\TACROLIMUS ANHYDROUS
     Dosage: 3 MILLIGRAM, Q12H
     Route: 048
  38. PROGRAF [Suspect]
     Active Substance: TACROLIMUS\TACROLIMUS ANHYDROUS
     Dosage: 6 MILLIGRAM, QD
     Route: 048
  39. PROGRAF [Suspect]
     Active Substance: TACROLIMUS\TACROLIMUS ANHYDROUS
     Dosage: 3 MILLIGRAM, Q12H
     Route: 048
  40. PROGRAF [Suspect]
     Active Substance: TACROLIMUS\TACROLIMUS ANHYDROUS
     Dosage: 3 MILLIGRAM, BID
     Route: 065
  41. REMICADE [Suspect]
     Active Substance: INFLIXIMAB
     Dosage: UNK
     Route: 042
  42. REMICADE [Suspect]
     Active Substance: INFLIXIMAB
     Dosage: UNK
     Route: 042
  43. CELLCEPT [Suspect]
     Active Substance: MYCOPHENOLATE MOFETIL\MYCOPHENOLATE MOFETIL HYDROCHLORIDE
     Dosage: 100 MG, BID
     Route: 065
  44. ANTILYMPHOCYTE GLOBULIN [Suspect]
     Active Substance: THYMOCYTE IMMUNE GLOBULIN NOS
     Dosage: 50 MILLIGRAM, UNK
     Route: 065
  45. ENBREL [Suspect]
     Active Substance: ETANERCEPT
     Dosage: 50 MILLIGRAM, QID
     Route: 058
  46. ENBREL [Suspect]
     Active Substance: ETANERCEPT
     Dosage: 25 MILLIGRAM, QID
     Route: 065
  47. ENBREL [Suspect]
     Active Substance: ETANERCEPT
     Dosage: 20 MILLIGRAM, UNK
     Route: 058
  48. ENBREL [Suspect]
     Active Substance: ETANERCEPT
     Dosage: 50 MILLIGRAM, QD
     Route: 058
  49. ENBREL [Suspect]
     Active Substance: ETANERCEPT
     Dosage: 50 MILLIGRAM, BID
     Route: 058
  50. ENBREL [Suspect]
     Active Substance: ETANERCEPT
     Dosage: 50 MILLIGRAM, QD
     Route: 065
  51. RAPAMUNE [Suspect]
     Active Substance: SIROLIMUS
     Dosage: 3 MILLIGRAM
     Route: 042
  52. MYCOPHENOLATE MOFETIL. [Suspect]
     Active Substance: MYCOPHENOLATE MOFETIL
     Dosage: 1000 MILLIGRAM, UNK
     Route: 048
  53. MYCOPHENOLATE MOFETIL. [Suspect]
     Active Substance: MYCOPHENOLATE MOFETIL
     Dosage: UNK
     Route: 065
  54. MYCOPHENOLATE MOFETIL. [Suspect]
     Active Substance: MYCOPHENOLATE MOFETIL
     Dosage: 1000 MILLIGRAM, Q12H
     Route: 048
  55. MYCOPHENOLATE MOFETIL. [Suspect]
     Active Substance: MYCOPHENOLATE MOFETIL
     Dosage: 100 MILLIGRAM, BID
     Route: 065
  56. MYCOPHENOLATE MOFETIL. [Suspect]
     Active Substance: MYCOPHENOLATE MOFETIL
     Dosage: 2000 MILLIGRAM
     Route: 048
  57. PROGRAF [Suspect]
     Active Substance: TACROLIMUS\TACROLIMUS ANHYDROUS
     Dosage: 2 MILLIGRAM, QD
     Route: 048
  58. PROGRAF [Suspect]
     Active Substance: TACROLIMUS\TACROLIMUS ANHYDROUS
     Dosage: 3 MILLIGRAM, UNK
     Route: 048
  59. PROGRAF [Suspect]
     Active Substance: TACROLIMUS\TACROLIMUS ANHYDROUS
     Dosage: 2 MILLIGRAM, BID
     Route: 048
  60. PROGRAF [Suspect]
     Active Substance: TACROLIMUS\TACROLIMUS ANHYDROUS
     Dosage: 2.5 MILLIGRAM, BID
     Route: 048
  61. PROGRAF [Suspect]
     Active Substance: TACROLIMUS\TACROLIMUS ANHYDROUS
     Dosage: 2.5 MILLIGRAM, QD
     Route: 048
  62. PROGRAF [Suspect]
     Active Substance: TACROLIMUS\TACROLIMUS ANHYDROUS
     Dosage: 2 MILLIGRAM, Q12H
     Route: 048
  63. TACROLIMUS. [Suspect]
     Active Substance: TACROLIMUS
     Dosage: 2.5 MILLIGRAM, QD
     Route: 048
  64. ZENAPAX [Suspect]
     Active Substance: DACLIZUMAB
     Dosage: 5 MILLIGRAM, UNK
     Route: 042
  65. CELLCEPT [Suspect]
     Active Substance: MYCOPHENOLATE MOFETIL\MYCOPHENOLATE MOFETIL HYDROCHLORIDE
     Indication: TRANSPLANT
     Dosage: 1000 MG, BID
     Route: 048
  66. CELLCEPT [Suspect]
     Active Substance: MYCOPHENOLATE MOFETIL\MYCOPHENOLATE MOFETIL HYDROCHLORIDE
     Dosage: 2000 MG, QD
     Route: 048
  67. ANTILYMPHOCYTE GLOBULIN [Suspect]
     Active Substance: THYMOCYTE IMMUNE GLOBULIN NOS
     Dosage: 6 MG/KG, UNK
     Route: 065
  68. ANTITHYMOCYTE IMMUNOGLOBULIN (RABBIT) [Suspect]
     Active Substance: LAPINE T-LYMPHOCYTE IMMUNE GLOBULIN
     Dosage: 6 MILLIGRAM/KILOGRAM
     Route: 065
  69. ANTITHYMOCYTE IMMUNOGLOBULIN (RABBIT) [Suspect]
     Active Substance: LAPINE T-LYMPHOCYTE IMMUNE GLOBULIN
     Dosage: 50 MILLIGRAM, UNK
     Route: 065
  70. ANTITHYMOCYTE IMMUNOGLOBULIN (RABBIT) [Suspect]
     Active Substance: LAPINE T-LYMPHOCYTE IMMUNE GLOBULIN
     Dosage: 6 MILLIGRAM/KILOGRAM, UNK
     Route: 065
  71. ENBREL [Suspect]
     Active Substance: ETANERCEPT
     Indication: PRODUCT USED FOR UNKNOWN INDICATION
     Dosage: 25 MG, UNK
     Route: 065
  72. ENBREL [Suspect]
     Active Substance: ETANERCEPT
     Dosage: 25 MILLIGRAM, QWK
     Route: 058
  73. ENBREL [Suspect]
     Active Substance: ETANERCEPT
     Dosage: 50 MILLIGRAM, QD
     Route: 048
  74. SULFASALAZINE. [Suspect]
     Active Substance: SULFASALAZINE
     Indication: RHEUMATOID ARTHRITIS
     Dosage: 1 GRAM, UNK
     Route: 065
  75. SULFASALAZINE. [Suspect]
     Active Substance: SULFASALAZINE
     Dosage: 1 GRAM, UNK
     Route: 042
  76. ANTITHYMOCYTE IMMUNOGLOBULIN [Suspect]
     Active Substance: THYMOCYTE IMMUNE GLOBULIN NOS
     Dosage: 6 MILLIGRAM, UNK
     Route: 065
  77. DACLIZUMAB [Suspect]
     Active Substance: DACLIZUMAB
     Dosage: 5 MILLIGRAM, UNK
     Route: 042
  78. MYCOPHENOLATE MOFETIL. [Suspect]
     Active Substance: MYCOPHENOLATE MOFETIL
     Dosage: 1000 MILLIGRAM, Q12H
     Route: 065
  79. MYCOPHENOLATE MOFETIL. [Suspect]
     Active Substance: MYCOPHENOLATE MOFETIL
     Dosage: 1000 MILLIGRAM, QD
     Route: 048
  80. NEORAL [Suspect]
     Active Substance: CYCLOSPORINE
     Dosage: 1000 MILLIGRAM, BID
     Route: 065
  81. PROGRAF [Suspect]
     Active Substance: TACROLIMUS\TACROLIMUS ANHYDROUS
     Dosage: 3 MILLIGRAM, BID
     Route: 048
  82. PROGRAF [Suspect]
     Active Substance: TACROLIMUS\TACROLIMUS ANHYDROUS
     Dosage: 3 MILLIGRAM, BID
     Route: 048
  83. PROGRAF [Suspect]
     Active Substance: TACROLIMUS\TACROLIMUS ANHYDROUS
     Dosage: 22 MILLIGRAM, BID
     Route: 048
  84. PROGRAF [Suspect]
     Active Substance: TACROLIMUS\TACROLIMUS ANHYDROUS
     Dosage: 2 MILLIGRAM, Q12H
     Route: 048
  85. PROGRAF [Suspect]
     Active Substance: TACROLIMUS\TACROLIMUS ANHYDROUS
     Dosage: 2.5 MILLIGRAM, QD
     Route: 048
  86. TACROLIMUS. [Suspect]
     Active Substance: TACROLIMUS
     Dosage: 2 MILLIGRAM, BID
     Route: 048
  87. TACROLIMUS. [Suspect]
     Active Substance: TACROLIMUS
     Dosage: 6 MILLIGRAM, QD
     Route: 048
  88. CELLCEPT [Suspect]
     Active Substance: MYCOPHENOLATE MOFETIL\MYCOPHENOLATE MOFETIL HYDROCHLORIDE
     Dosage: 2000 MG, QD
     Route: 048
  89. CELLCEPT [Suspect]
     Active Substance: MYCOPHENOLATE MOFETIL\MYCOPHENOLATE MOFETIL HYDROCHLORIDE
     Dosage: 1000 MG, BID
     Route: 065
  90. ANTILYMPHOCYTE GLOBULIN [Suspect]
     Active Substance: THYMOCYTE IMMUNE GLOBULIN NOS
     Dosage: 60 MG, UNK
     Route: 065
  91. ENBREL [Suspect]
     Active Substance: ETANERCEPT
     Dosage: 25 MILLIGRAM, UNK
     Route: 065
  92. ENBREL [Suspect]
     Active Substance: ETANERCEPT
     Dosage: 25 MILLIGRAM, QD
     Route: 058
  93. ENBREL [Suspect]
     Active Substance: ETANERCEPT
     Dosage: 25 MILLIGRAM, QWK
     Route: 058
  94. PROGRAF [Suspect]
     Active Substance: TACROLIMUS\TACROLIMUS ANHYDROUS
     Dosage: 11 MILLIGRAM, UNK
     Route: 048
  95. PROGRAF [Suspect]
     Active Substance: TACROLIMUS\TACROLIMUS ANHYDROUS
     Dosage: 2 MILLIGRAM, BID
     Route: 048
  96. PROGRAF [Suspect]
     Active Substance: TACROLIMUS\TACROLIMUS ANHYDROUS
     Dosage: 2.5 MILLIGRAM, BID
     Route: 048
  97. PROGRAF [Suspect]
     Active Substance: TACROLIMUS\TACROLIMUS ANHYDROUS
     Dosage: UNK
     Route: 048
  98. PROGRAF [Suspect]
     Active Substance: TACROLIMUS\TACROLIMUS ANHYDROUS
     Dosage: 2.5 MILLIGRAM, Q12H
     Route: 048
  99. PROGRAF [Suspect]
     Active Substance: TACROLIMUS\TACROLIMUS ANHYDROUS
     Dosage: 6 MILLIGRAM, QD
     Route: 048
  100. PROGRAF [Suspect]
     Active Substance: TACROLIMUS\TACROLIMUS ANHYDROUS
     Dosage: 6 MILLIGRAM, QD
     Route: 048
  101. PROGRAF [Suspect]
     Active Substance: TACROLIMUS\TACROLIMUS ANHYDROUS
     Dosage: 4 MILLIGRAM, QD
     Route: 065
  102. TACROLIMUS. [Suspect]
     Active Substance: TACROLIMUS
     Dosage: 11.1 GRAM, UNK
     Route: 065
  103. TACROLIMUS. [Suspect]
     Active Substance: TACROLIMUS
     Dosage: 3 MILLIGRAM, Q12H
     Route: 048
  104. CELLCEPT [Suspect]
     Active Substance: MYCOPHENOLATE MOFETIL\MYCOPHENOLATE MOFETIL HYDROCHLORIDE
     Dosage: 1000 MG, BID
     Route: 048
  105. ZINBRYTA [Suspect]
     Active Substance: DACLIZUMAB
     Dosage: UNK
     Route: 042
  106. ANTILYMPHOCYTE GLOBULIN [Suspect]
     Active Substance: THYMOCYTE IMMUNE GLOBULIN NOS
     Dosage: 6 MG/KG, UNK
     Route: 065
  107. TEMAZEPAM. [Suspect]
     Active Substance: TEMAZEPAM
     Dosage: UNK
     Route: 065
  108. ENBREL [Suspect]
     Active Substance: ETANERCEPT
     Dosage: 25 MILLIGRAM, QID
     Route: 065
  109. ENBREL [Suspect]
     Active Substance: ETANERCEPT
     Dosage: 50 MILLIGRAM, UNK
     Route: 058
  110. ENBREL [Suspect]
     Active Substance: ETANERCEPT
     Dosage: 25 MILLIGRAM,QD
     Route: 058
  111. ENBREL [Suspect]
     Active Substance: ETANERCEPT
     Dosage: 50 MILLIGRAM, UNK
     Route: 058
  112. SULFASALAZINE. [Suspect]
     Active Substance: SULFASALAZINE
     Dosage: UNK
     Route: 065
  113. ANTITHYMOCYTE IMMUNOGLOBULIN [Suspect]
     Active Substance: THYMOCYTE IMMUNE GLOBULIN NOS
     Indication: TRANSPLANT
     Dosage: UNK (6 MG/KG)
     Route: 065
  114. ANTITHYMOCYTE IMMUNOGLOBULIN [Suspect]
     Active Substance: THYMOCYTE IMMUNE GLOBULIN NOS
     Dosage: UNK
     Route: 065
  115. DACLIZUMAB [Suspect]
     Active Substance: DACLIZUMAB
     Dosage: UNK
     Route: 042
  116. MYCOPHENOLATE MOFETIL. [Suspect]
     Active Substance: MYCOPHENOLATE MOFETIL
     Indication: TRANSPLANT
     Dosage: 2000 MG, QD
     Route: 048
  117. MYCOPHENOLATE MOFETIL. [Suspect]
     Active Substance: MYCOPHENOLATE MOFETIL
     Dosage: UNK
     Route: 065
  118. MYCOPHENOLATE MOFETIL. [Suspect]
     Active Substance: MYCOPHENOLATE MOFETIL
     Dosage: 1000 MG, Q12H
     Route: 065
  119. NEORAL [Suspect]
     Active Substance: CYCLOSPORINE
     Indication: TRANSPLANT
     Dosage: UNK
     Route: 065
  120. PROGRAF [Suspect]
     Active Substance: TACROLIMUS\TACROLIMUS ANHYDROUS
     Dosage: 2 MILLIGRAM, BID
     Route: 048
  121. PROGRAF [Suspect]
     Active Substance: TACROLIMUS\TACROLIMUS ANHYDROUS
     Dosage: 4 MILLIGRAM, QD
     Route: 065
  122. PROGRAF [Suspect]
     Active Substance: TACROLIMUS\TACROLIMUS ANHYDROUS
     Dosage: 5 MILLIGRAM, QD
     Route: 048
  123. PROGRAF [Suspect]
     Active Substance: TACROLIMUS\TACROLIMUS ANHYDROUS
     Dosage: 11.3 MILLIGRAM, BID
     Route: 048
  124. PROGRAF [Suspect]
     Active Substance: TACROLIMUS\TACROLIMUS ANHYDROUS
     Dosage: 2 MILLIGRAM, BID
     Route: 048
  125. REMICADE [Suspect]
     Active Substance: INFLIXIMAB
     Dosage: UNK
     Route: 065
  126. TACROLIMUS. [Suspect]
     Active Substance: TACROLIMUS
     Indication: TRANSPLANT
     Dosage: 3 MILLIGRAM, BID
     Route: 048
  127. TACROLIMUS. [Suspect]
     Active Substance: TACROLIMUS
     Dosage: 2 MILLIGRAM, Q12H
     Route: 048
  128. TACROLIMUS. [Suspect]
     Active Substance: TACROLIMUS
     Dosage: 6 MILLIGRAM, QD
     Route: 048
  129. TACROLIMUS. [Suspect]
     Active Substance: TACROLIMUS
     Dosage: 4 MILLIGRAM, QD
     Route: 048
  130. ANTIHUMANLYMFOCYT-GLOBULIN [Suspect]
     Active Substance: THYMOCYTE IMMUNE GLOBULIN NOS
     Indication: TRANSPLANT
     Dosage: 60 MILLIGRAM, UNK
     Route: 065
  131. ANTITHYMOCYTE IMMUNOGLOBULIN (RABBIT) [Suspect]
     Active Substance: LAPINE T-LYMPHOCYTE IMMUNE GLOBULIN
     Dosage: 60 MILLIGRAM/KILOGRAM, UNK
     Route: 065
  132. ANTITHYMOCYTE IMMUNOGLOBULIN (RABBIT) [Suspect]
     Active Substance: LAPINE T-LYMPHOCYTE IMMUNE GLOBULIN
     Dosage: 6 MILLIGRAM/KILOGRAM, UNK
     Route: 065
  133. ANTITHYMOCYTE IMMUNOGLOBULIN (RABBIT) [Suspect]
     Active Substance: LAPINE T-LYMPHOCYTE IMMUNE GLOBULIN
     Dosage: 3 MILLIGRAM, BID
     Route: 065
  134. INFLIXIMAB PFIZER (UNKNOWN) [Suspect]
     Active Substance: INFLIXIMAB
     Indication: TRANSPLANT
     Dosage: UNK
     Route: 042
  135. ENBREL [Suspect]
     Active Substance: ETANERCEPT
     Dosage: 25 MILLIGRAM, QWK
     Route: 048
  136. ANTITHYMOCYTE IMMUNOGLOBULIN [Suspect]
     Active Substance: THYMOCYTE IMMUNE GLOBULIN NOS
     Dosage: 60 MILLIGRAM, UNK
     Route: 065
  137. ANTITHYMOCYTE IMMUNOGLOBULIN [Suspect]
     Active Substance: THYMOCYTE IMMUNE GLOBULIN NOS
     Dosage: UNK (60 MG/KG)
     Route: 065
  138. DACLIZUMAB [Suspect]
     Active Substance: DACLIZUMAB
     Dosage: UNK
     Route: 042
  139. MYCOPHENOLATE MOFETIL. [Suspect]
     Active Substance: MYCOPHENOLATE MOFETIL
     Dosage: 100 MILLIGRAM, BID
     Route: 065
  140. PROGRAF [Suspect]
     Active Substance: TACROLIMUS\TACROLIMUS ANHYDROUS
     Indication: TRANSPLANT
     Dosage: 1000 MILLIGRAM, BID
     Route: 048
  141. PROGRAF [Suspect]
     Active Substance: TACROLIMUS\TACROLIMUS ANHYDROUS
     Dosage: 5 MILLIGRAM, QD
     Route: 048
  142. TACROLIMUS. [Suspect]
     Active Substance: TACROLIMUS
     Dosage: 2.5 MILLIGRAM, Q12H
     Route: 048
  143. TACROLIMUS. [Suspect]
     Active Substance: TACROLIMUS
     Dosage: 3 MILLIGRAM, DAILY
     Route: 048
  144. CELLCEPT [Suspect]
     Active Substance: MYCOPHENOLATE MOFETIL\MYCOPHENOLATE MOFETIL HYDROCHLORIDE
     Dosage: UNK
     Route: 065
  145. CELLCEPT [Suspect]
     Active Substance: MYCOPHENOLATE MOFETIL\MYCOPHENOLATE MOFETIL HYDROCHLORIDE
     Dosage: 2000 MG, QD
     Route: 048
  146. ANTILYMPHOCYTE GLOBULIN [Suspect]
     Active Substance: THYMOCYTE IMMUNE GLOBULIN NOS
     Dosage: 60 MILLIGRAM, UNK
     Route: 065
  147. ANTILYMPHOCYTE GLOBULIN [Suspect]
     Active Substance: THYMOCYTE IMMUNE GLOBULIN NOS
     Dosage: UNK (60MG/KG)
     Route: 065
  148. ENBREL [Suspect]
     Active Substance: ETANERCEPT
     Dosage: 25 MILLIGRAM, UNK
     Route: 058
  149. ENBREL [Suspect]
     Active Substance: ETANERCEPT
     Dosage: 50 MILLIGRAM, QD
     Route: 058
  150. ENBREL [Suspect]
     Active Substance: ETANERCEPT
     Dosage: 50 MILLIGRAM, QWK
     Route: 058
  151. ENBREL [Suspect]
     Active Substance: ETANERCEPT
     Dosage: 25 MILLIGRAM, QD
     Route: 048
  152. ENBREL [Suspect]
     Active Substance: ETANERCEPT
     Dosage: 25 MILLIGRAM, UNK
     Route: 058
  153. ENBREL [Suspect]
     Active Substance: ETANERCEPT
     Dosage: 25 MILLIGRAM
     Route: 058
  154. RAPAMUNE [Suspect]
     Active Substance: SIROLIMUS
     Indication: TRANSPLANT
     Dosage: UNK
     Route: 065
  155. MYCOPHENOLATE MOFETIL. [Suspect]
     Active Substance: MYCOPHENOLATE MOFETIL
     Dosage: 1000 MILLIGRAM, BID
     Route: 048
  156. MYCOPHENOLATE MOFETIL. [Suspect]
     Active Substance: MYCOPHENOLATE MOFETIL
     Dosage: 2000 MILLIGRAM, QD
     Route: 048
  157. PROGRAF [Suspect]
     Active Substance: TACROLIMUS\TACROLIMUS ANHYDROUS
     Dosage: 3 MILLIGRAM, 2 EVERY 1 HOUR
     Route: 065
  158. PROGRAF [Suspect]
     Active Substance: TACROLIMUS\TACROLIMUS ANHYDROUS
     Dosage: 6 MILLIGRAM, DAILY
     Route: 048
  159. PROGRAF [Suspect]
     Active Substance: TACROLIMUS\TACROLIMUS ANHYDROUS
     Dosage: 2.5 MILLIGRAM, QD
     Route: 048
  160. PROGRAF [Suspect]
     Active Substance: TACROLIMUS\TACROLIMUS ANHYDROUS
     Dosage: 2 MILLIGRAM, UNK
     Route: 065
  161. PROGRAF [Suspect]
     Active Substance: TACROLIMUS\TACROLIMUS ANHYDROUS
     Dosage: 5 MILLIGRAM, QD
     Route: 048
  162. TACROLIMUS. [Suspect]
     Active Substance: TACROLIMUS
     Dosage: 5 MILLIGRAM, QD
     Route: 048
  163. ANTILYMPHOCYTE GLOBULIN [Suspect]
     Active Substance: THYMOCYTE IMMUNE GLOBULIN NOS
     Dosage: 6 MG/KG, UNK
     Route: 065
  164. ANTILYMPHOCYTE GLOBULIN [Suspect]
     Active Substance: THYMOCYTE IMMUNE GLOBULIN NOS
     Dosage: UNK
     Route: 065
  165. ANTITHYMOCYTE IMMUNOGLOBULIN (RABBIT) [Suspect]
     Active Substance: LAPINE T-LYMPHOCYTE IMMUNE GLOBULIN
     Indication: TRANSPLANT
     Dosage: 60 MILLIGRAM, UNK
     Route: 065
  166. ANTITHYMOCYTE IMMUNOGLOBULIN (RABBIT) [Suspect]
     Active Substance: LAPINE T-LYMPHOCYTE IMMUNE GLOBULIN
     Dosage: 60 MILLIGRAM/KILOGRAM, UNK
     Route: 065

REACTIONS (16)
  - Liver function test abnormal [Not Recovered/Not Resolved]
  - Sleep disorder due to general medical condition, insomnia type [Not Recovered/Not Resolved]
  - Ovarian cyst [Not Recovered/Not Resolved]
  - Transplant dysfunction [Not Recovered/Not Resolved]
  - Pneumonia [Not Recovered/Not Resolved]
  - Alopecia [Not Recovered/Not Resolved]
  - Loss of personal independence in daily activities [Not Recovered/Not Resolved]
  - Condition aggravated [Not Recovered/Not Resolved]
  - Product use issue [Unknown]
  - Acne [Not Recovered/Not Resolved]
  - Pain [Not Recovered/Not Resolved]
  - Drug ineffective [Not Recovered/Not Resolved]
  - Overdose [Not Recovered/Not Resolved]
  - Rheumatoid arthritis [Not Recovered/Not Resolved]
  - Transplant rejection [Not Recovered/Not Resolved]
  - Incorrect route of product administration [Unknown]
